FAERS Safety Report 21713546 (Version 1)
Quarter: 2022Q4

REPORT INFORMATION
  Report Type: Spontaneous
  Country: US (occurrence: US)
  Receive Date: 20221212
  Receipt Date: 20221212
  Transmission Date: 20230113
  Serious: Yes (Hospitalization)
  Sender: FDA-Public Use
  Company Number: US-ORG100016242-2022002904

PATIENT
  Sex: Female

DRUGS (2)
  1. EXPAREL [Suspect]
     Active Substance: BUPIVACAINE
     Indication: Knee arthroplasty
     Route: 050
     Dates: start: 20221018, end: 20221018
  2. BUPIVACAINE [Suspect]
     Active Substance: BUPIVACAINE
     Indication: Knee arthroplasty
     Route: 050
     Dates: start: 20221018, end: 20221018

REACTIONS (3)
  - Procedural pain [Recovered/Resolved]
  - Therapeutic product effect variable [Recovered/Resolved]
  - Off label use [Unknown]

NARRATIVE: CASE EVENT DATE: 20221018
